FAERS Safety Report 11347903 (Version 1)
Quarter: 2015Q3

REPORT INFORMATION
  Report Type: Spontaneous
  Country: TR (occurrence: TR)
  Receive Date: 20150806
  Receipt Date: 20150806
  Transmission Date: 20151125
  Serious: Yes (Hospitalization)
  Sender: FDA-Public Use
  Company Number: TR-GLAXOSMITHKLINE-TR2015GSK112810

PATIENT
  Age: 10 Year
  Sex: Female

DRUGS (2)
  1. SALBUTAMOL [Suspect]
     Active Substance: ALBUTEROL
     Indication: BRONCHITIS
  2. VENTOLIN [Suspect]
     Active Substance: ALBUTEROL SULFATE
     Dosage: 150 ML, UNK

REACTIONS (8)
  - Hypokalaemia [Unknown]
  - Atrial flutter [Unknown]
  - Sinus tachycardia [Unknown]
  - Overdose [Unknown]
  - Blood sodium decreased [Unknown]
  - Tachycardia [Unknown]
  - Pyrexia [Unknown]
  - Toxicity to various agents [Unknown]
